FAERS Safety Report 4539496-3 (Version None)
Quarter: 2004Q4

REPORT INFORMATION
  Report Type: 
  Country: None (occurrence: None)
  Receive Date: 20041222
  Receipt Date: 20041210
  Transmission Date: 20050328
  Serious: Yes (Death)
  Sender: FDA-Public Use
  Company Number: 2004-DE-06189GD

PATIENT
  Age: 89 Year
  Sex: Male

DRUGS (5)
  1. PREDNISONE [Suspect]
     Indication: POLYMYALGIA RHEUMATICA
     Dosage: 7.5 MG (NR), NR,   (SEE IMAGE)
  2. PREDNISONE [Suspect]
     Indication: POLYMYALGIA RHEUMATICA
     Dosage: 7.5 MG (NR), NR,   (SEE IMAGE)
  3. TORSEMIDE [Concomitant]
  4. AMOXICILLIN [Concomitant]
  5. CLAVULANIC ACID [Concomitant]

REACTIONS (13)
  - ACUTE CORONARY SYNDROME [None]
  - ARRHYTHMIA [None]
  - CORONARY ARTERY STENOSIS [None]
  - LEFT VENTRICULAR FAILURE [None]
  - OXYGEN SATURATION DECREASED [None]
  - PAPILLARY MUSCLE RUPTURE [None]
  - PLEURAL EFFUSION [None]
  - PNEUMONIA [None]
  - PROTHROMBIN TIME PROLONGED [None]
  - PULMONARY CONGESTION [None]
  - PULMONARY OEDEMA [None]
  - RENAL FAILURE [None]
  - WHITE BLOOD CELL COUNT INCREASED [None]
